FAERS Safety Report 15863571 (Version 1)
Quarter: 2019Q1

REPORT INFORMATION
  Report Type: Spontaneous
  Country: US (occurrence: US)
  Receive Date: 20190124
  Receipt Date: 20190124
  Transmission Date: 20190417
  Serious: Yes (Death)
  Sender: FDA-Public Use
  Company Number: None

PATIENT
  Age: 58 Year
  Weight: 83.7 kg

DRUGS (3)
  1. RISPERDAL CONSTA [Suspect]
     Active Substance: RISPERIDONE
     Indication: SCHIZOPHRENIA
     Dosage: ?          OTHER FREQUENCY:EVERY TWO WEEKS;?
     Route: 030
     Dates: start: 20110101, end: 20180719
  2. ZYPREXA [Suspect]
     Active Substance: OLANZAPINE
     Indication: SCHIZOPHRENIA
     Dosage: AT BEDTIME
     Route: 048
     Dates: start: 20110101, end: 20180801
  3. RISPERDAL 4MG PO BID [Concomitant]
     Dates: start: 20110101, end: 20180801

REACTIONS (7)
  - Pulseless electrical activity [None]
  - Sudden death [None]
  - Mental disorder [None]
  - Cardiac arrest [None]
  - Volvulus [None]
  - Respiratory arrest [None]
  - Intestinal ischaemia [None]

NARRATIVE: CASE EVENT DATE: 20180803
